FAERS Safety Report 12998240 (Version 1)
Quarter: 2016Q4

REPORT INFORMATION
  Report Type: Spontaneous
  Country: US (occurrence: US)
  Receive Date: 20161202
  Receipt Date: 20161202
  Transmission Date: 20170207
  Serious: Yes (Other)
  Sender: FDA-Public Use
  Company Number: None

PATIENT
  Age: 60 Year
  Sex: Male
  Weight: 108.6 kg

DRUGS (1)
  1. DARZALEX [Suspect]
     Active Substance: DARATUMUMAB
     Indication: PLASMA CELL MYELOMA
     Dosage: ?          OTHER FREQUENCY:WEEKLY;?INTRAVENOUS (NOT OTHERWISE SPECIFIED)
     Route: 042
     Dates: start: 20161202, end: 20161202

REACTIONS (7)
  - Cough [None]
  - Wheezing [None]
  - Erythema [None]
  - Feeling abnormal [None]
  - Dyspnoea [None]
  - Infusion related reaction [None]
  - Pharyngeal oedema [None]

NARRATIVE: CASE EVENT DATE: 20161202
